FAERS Safety Report 7007097-3 (Version None)
Quarter: 2010Q3

REPORT INFORMATION
  Report Type: 
  Country: None (occurrence: None)
  Receive Date: 20100922
  Receipt Date: 20100909
  Transmission Date: 20110219
  Serious: Yes (Other)
  Sender: FDA-Public Use
  Company Number: FR-ELI_LILLY_AND_COMPANY-FR201006006728

PATIENT
  Sex: Female
  Weight: 55.4 kg

DRUGS (8)
  1. EXENATIDE [Suspect]
     Indication: DIABETES MELLITUS
     Dosage: 10 UG, 2/D
     Route: 058
     Dates: start: 20090113, end: 20100526
  2. GLIMEPIRIDE [Concomitant]
     Indication: DIABETES MELLITUS
     Dosage: 2 MG, UNK
     Dates: start: 20090113, end: 20100602
  3. METFORMIN HCL [Concomitant]
     Indication: DIABETES MELLITUS
     Dosage: UNK, UNK
     Dates: start: 19970101
  4. FUROSEMIDE [Concomitant]
     Indication: HYPERTENSION
     Dates: start: 19930101
  5. ZANIDIP [Concomitant]
     Indication: HYPERTENSION
     Dates: start: 19980101
  6. NEBIVOLOL HCL [Concomitant]
     Indication: HYPERTENSION
     Dates: start: 20090101
  7. KORETIC [Concomitant]
     Indication: HYPERTENSION
     Dosage: 20 MG, UNK
     Dates: start: 19980101
  8. TAHOR [Concomitant]
     Indication: HYPERCHOLESTEROLAEMIA
     Dosage: 10, UNK
     Dates: start: 19980101

REACTIONS (1)
  - PANCREATITIS [None]
